FAERS Safety Report 5380511-5 (Version None)
Quarter: 2007Q3

REPORT INFORMATION
  Report Type: 
  Country: None (occurrence: None)
  Receive Date: 20070703
  Receipt Date: 20070621
  Transmission Date: 20080115
  Serious: Yes (Other)
  Sender: FDA-Public Use
  Company Number: AZAUK200700212

PATIENT
  Age: 65 Year
  Sex: Male

DRUGS (3)
  1. VIDAZA [Suspect]
     Indication: MYELODYSPLASTIC SYNDROME
     Dosage: 75 MG/M2 (DAILY X 5 DAYS),INTRAVENOUS
     Route: 042
  2. LEVOTHYROXINE SODIUM [Concomitant]
  3. ACYCLOVIR [Concomitant]

REACTIONS (5)
  - ANAEMIA [None]
  - DRUG INTOLERANCE [None]
  - NAUSEA [None]
  - POLYCHROMASIA [None]
  - RED BLOOD CELL SPHEROCYTES PRESENT [None]
